FAERS Safety Report 5970379-8 (Version None)
Quarter: 2008Q4

REPORT INFORMATION
  Report Type: 
  Country: None (occurrence: None)
  Receive Date: 20081126
  Receipt Date: 20081030
  Transmission Date: 20090506
  Serious: No
  Sender: FDA-Public Use
  Company Number: US-ABBOTT-08P-163-0483588-00

PATIENT
  Sex: Male
  Weight: 108.05 kg

DRUGS (9)
  1. SIMCOR [Suspect]
     Indication: BLOOD CHOLESTEROL INCREASED
     Dosage: 500/20
     Dates: start: 20080701
  2. XYXOL [Concomitant]
     Indication: HYPERSENSITIVITY
  3. MOMETASONE FUROATE [Concomitant]
     Indication: HYPERSENSITIVITY
     Dosage: QHS
     Route: 045
  4. MONTELUKAST SODIUM [Concomitant]
     Indication: HYPERSENSITIVITY
     Dosage: DAILY
  5. UNKNOWN SHOT FOR ALLERGIES [Concomitant]
     Indication: HYPERSENSITIVITY
  6. KAPSOVIT [Concomitant]
     Indication: DRUG USE FOR UNKNOWN INDICATION
  7. ACETYLSALICYLIC ACID SRT [Concomitant]
     Indication: PROPHYLAXIS
     Dosage: 81MG DAILY, 1 HOUR BEFORE SIMCOR
  8. INEGY [Concomitant]
     Indication: BLOOD CHOLESTEROL
  9. NICOTINIC ACID [Concomitant]
     Indication: BLOOD CHOLESTEROL

REACTIONS (4)
  - FLUSHING [None]
  - PARAESTHESIA [None]
  - PRURITUS [None]
  - RASH [None]
